FAERS Safety Report 21809265 (Version 1)
Quarter: 2023Q1

REPORT INFORMATION
  Report Type: Spontaneous
  Country: US (occurrence: US)
  Receive Date: 20230103
  Receipt Date: 20230103
  Transmission Date: 20230417
  Serious: Yes (Other)
  Sender: FDA-Public Use
  Company Number: US-SUN PHARMACEUTICAL INDUSTRIES LTD-2022R1-371299

PATIENT
  Sex: Female

DRUGS (2)
  1. METHOTREXATE [Suspect]
     Active Substance: METHOTREXATE
     Indication: Leiomyoma
     Dosage: 1 MILLION PER KILOGRAM, WEEKLY
     Route: 065
  2. VINBLASTINE [Suspect]
     Active Substance: VINBLASTINE
     Indication: Leiomyoma
     Dosage: 0.17 MILLIGRAM/KILOGRAM, WEEKLY
     Route: 065

REACTIONS (1)
  - Treatment failure [Unknown]
